FAERS Safety Report 8143471-X (Version None)
Quarter: 2012Q1

REPORT INFORMATION
  Report Type: 
  Country: None (occurrence: None)
  Receive Date: 20120217
  Receipt Date: 20120214
  Transmission Date: 20120608
  Serious: Yes (Other)
  Sender: FDA-Public Use
  Company Number: US-SHIRE-ALL1-2012-00904

PATIENT
  Sex: Male

DRUGS (1)
  1. INTUNIV [Suspect]
     Indication: ATTENTION DEFICIT/HYPERACTIVITY DISORDER
     Dosage: 2 MG, 1X/DAY:QD
     Route: 048
     Dates: end: 20120201

REACTIONS (3)
  - SYNCOPE [None]
  - BIPOLAR DISORDER [None]
  - BLOOD PRESSURE FLUCTUATION [None]
